FAERS Safety Report 15642014 (Version 1)
Quarter: 2018Q4

REPORT INFORMATION
  Report Type: Spontaneous
  Country: US (occurrence: US)
  Receive Date: 20181121
  Receipt Date: 20181121
  Transmission Date: 20190205
  Serious: No
  Sender: FDA-Public Use
  Company Number: US-APOTEX-2018AP017384

PATIENT
  Sex: Female

DRUGS (4)
  1. OMEGA 3 ACID ETHYL ESTERS [Suspect]
     Active Substance: OMEGA-3-ACID ETHYL ESTERS
     Indication: BLOOD CHOLESTEROL INCREASED
     Dosage: 1 G, 2 CAPSULES 2X A DAY
     Route: 065
     Dates: start: 20180608, end: 20180706
  2. ACTONEL [Concomitant]
     Active Substance: RISEDRONATE SODIUM
     Indication: BONE PAIN
     Dosage: 150 MG, Q.M.T. (150MG/1 TAB PER MONTH)
     Route: 065
  3. ZETIA [Concomitant]
     Active Substance: EZETIMIBE
     Indication: BLOOD CHOLESTEROL
     Dosage: 50 MG, PER DAY
     Route: 065
  4. DETROL [Concomitant]
     Active Substance: TOLTERODINE TARTRATE
     Indication: BLADDER REPAIR
     Dosage: 1 DF, QD (1 TAB PER DAY)
     Route: 065

REACTIONS (8)
  - Pollakiuria [Recovered/Resolved]
  - Dry throat [Recovered/Resolved]
  - Dry eye [Recovered/Resolved]
  - Malaise [Recovered/Resolved]
  - Dehydration [Recovered/Resolved]
  - Dry mouth [Recovered/Resolved]
  - Eye irritation [Recovered/Resolved]
  - Micturition urgency [Recovered/Resolved]
